FAERS Safety Report 5580889-3 (Version None)
Quarter: 2008Q1

REPORT INFORMATION
  Report Type: 
  Country: None (occurrence: None)
  Receive Date: 20080103
  Receipt Date: 20071220
  Transmission Date: 20080703
  Serious: Yes (Hospitalization, Other)
  Sender: FDA-Public Use
  Company Number: US-AMGEN-STX254153

PATIENT
  Sex: Female
  Weight: 158.9 kg

DRUGS (9)
  1. ENBREL [Suspect]
     Indication: PSORIASIS
     Route: 058
     Dates: start: 20070912
  2. LEXAPRO [Concomitant]
     Route: 065
     Dates: start: 20040101
  3. LOESTRIN [Concomitant]
     Route: 065
     Dates: start: 20071021
  4. DESONIDE [Concomitant]
     Route: 065
     Dates: start: 20070624
  5. OLUX [Concomitant]
     Route: 065
     Dates: start: 20070626
  6. VYTORIN [Concomitant]
     Route: 065
     Dates: start: 20070901, end: 20070930
  7. PREVACID [Concomitant]
  8. LORAZEPAM [Concomitant]
     Route: 065
  9. FIORICET [Concomitant]
     Route: 065

REACTIONS (4)
  - FALL [None]
  - MUSCULAR WEAKNESS [None]
  - PATELLA FRACTURE [None]
  - TENDON RUPTURE [None]
